FAERS Safety Report 10448686 (Version 2)
Quarter: 2015Q1

REPORT INFORMATION
  Report Type: Spontaneous
  Country: US (occurrence: US)
  Receive Date: 20140912
  Receipt Date: 20150202
  Transmission Date: 20150720
  Serious: Yes (Other)
  Sender: FDA-Public Use
  Company Number: US-AUROBINDO-AUR-APL-2014-09499

PATIENT
  Age: 54 Year
  Sex: Female

DRUGS (5)
  1. LIDOCAINE INJECTION [Suspect]
     Active Substance: LIDOCAINE
     Indication: ANAESTHESIA
     Dosage: 2.5ML OF 0.5%
     Route: 058
  2. LIDOCAINE INJECTION [Suspect]
     Active Substance: LIDOCAINE
     Dosage: ADDITIONAL 2.5ML OF 0.5%
     Route: 058
  3. METHYLPREDNISOLONE. [Concomitant]
     Active Substance: METHYLPREDNISOLONE
     Indication: PRODUCT USED FOR UNKNOWN INDICATION
     Dosage: 80 MG(2ML), UNK
     Route: 065
  4. BOTULINUM TOXIN [Concomitant]
     Active Substance: BOTULINUM TOXIN TYPE A
     Indication: PAIN
     Dosage: UNK
     Route: 065
  5. BUPIVACAINE HYDROCHLORIDE. [Concomitant]
     Active Substance: BUPIVACAINE HYDROCHLORIDE
     Indication: PRODUCT USED FOR UNKNOWN INDICATION
     Dosage: 3 ML, UNK
     Route: 065

REACTIONS (5)
  - Lagophthalmos [Recovered/Resolved]
  - Ophthalmoplegia [Recovered/Resolved]
  - Discomfort [Recovered/Resolved]
  - Hypoaesthesia [Recovered/Resolved]
  - Analgesic therapy [Recovered/Resolved]
